FAERS Safety Report 8438759-9 (Version None)
Quarter: 2012Q2

REPORT INFORMATION
  Report Type: 
  Country: None (occurrence: None)
  Receive Date: 20120605
  Receipt Date: 20120524
  Transmission Date: 20120825
  Serious: Yes (Other)
  Sender: FDA-Public Use
  Company Number: 2012SA037789

PATIENT
  Sex: Female

DRUGS (1)
  1. MENTHOL [Suspect]
     Dates: start: 20120101

REACTIONS (3)
  - BURNS SECOND DEGREE [None]
  - IMPAIRED HEALING [None]
  - BURNS FIRST DEGREE [None]
